FAERS Safety Report 22354739 (Version 1)
Quarter: 2023Q2

REPORT INFORMATION
  Report Type: Spontaneous
  Country: US (occurrence: None)
  Receive Date: 20230522
  Receipt Date: 20230522
  Transmission Date: 20230722
  Serious: Yes (Disabling)
  Sender: FDA-Public Use
  Company Number: None

PATIENT
  Age: 76 Year
  Sex: Female
  Weight: 72 kg

DRUGS (5)
  1. RECLAST [Suspect]
     Active Substance: ZOLEDRONIC ACID
     Indication: Bone density abnormal
     Route: 042
     Dates: start: 20230503, end: 20230503
  2. METHOTREXATE [Concomitant]
     Active Substance: METHOTREXATE
  3. METHYLPREDNISOLONE [Concomitant]
     Active Substance: METHYLPREDNISOLONE
  4. VITAMIN D [Concomitant]
     Active Substance: VITAMIN D NOS
  5. ASPIRIN [Concomitant]
     Active Substance: ASPIRIN

REACTIONS (11)
  - Chills [None]
  - Fatigue [None]
  - Decreased appetite [None]
  - Pyrexia [None]
  - Dizziness [None]
  - Dizziness [None]
  - Joint swelling [None]
  - Peripheral swelling [None]
  - Peripheral swelling [None]
  - Somnolence [None]
  - Infusion related reaction [None]

NARRATIVE: CASE EVENT DATE: 20230503
